FAERS Safety Report 17113564 (Version 1)
Quarter: 2019Q4

REPORT INFORMATION
  Report Type: Spontaneous
  Country: US (occurrence: US)
  Receive Date: 20191205
  Receipt Date: 20191205
  Transmission Date: 20200122
  Serious: Yes (Other)
  Sender: FDA-Public Use
  Company Number: PHHY2018US072164

PATIENT

DRUGS (5)
  1. SIGNIFOR [Suspect]
     Active Substance: PASIREOTIDE
     Indication: HORMONE-REFRACTORY PROSTATE CANCER
     Dosage: 40 MG, UNK
     Route: 030
  2. DOCETAXEL. [Concomitant]
     Active Substance: DOCETAXEL
     Indication: HORMONE-REFRACTORY PROSTATE CANCER
     Dosage: 75 MG/M2, EVERY 21 DAYS
     Route: 042
  3. PREDNISONE. [Concomitant]
     Active Substance: PREDNISONE
     Indication: HORMONE-REFRACTORY PROSTATE CANCER
     Dosage: 5 MG, BID
     Route: 048
  4. SIGNIFOR [Suspect]
     Active Substance: PASIREOTIDE
     Dosage: 60 MG, UNK
     Route: 030
  5. SIGNIFOR [Suspect]
     Active Substance: PASIREOTIDE
     Dosage: 80 MG, UNK
     Route: 030

REACTIONS (1)
  - Amylase increased [Unknown]
